FAERS Safety Report 19152475 (Version 1)
Quarter: 2021Q2

REPORT INFORMATION
  Report Type: Spontaneous
  Country: US (occurrence: US)
  Receive Date: 20210417
  Receipt Date: 20210417
  Transmission Date: 20210717
  Serious: Yes (Hospitalization)
  Sender: FDA-Public Use
  Company Number: None

PATIENT
  Age: 46 Year
  Sex: Female
  Weight: 69 kg

DRUGS (4)
  1. ALOXI [Suspect]
     Active Substance: PALONOSETRON HYDROCHLORIDE
     Dates: end: 20210329
  2. DEXAMETHASONE. [Suspect]
     Active Substance: DEXAMETHASONE
     Dates: end: 20210401
  3. FOSAPREPITANT DIMEGLUMINE. [Suspect]
     Active Substance: FOSAPREPITANT DIMEGLUMINE
     Dates: end: 20210329
  4. OLANZAPINE. [Suspect]
     Active Substance: OLANZAPINE
     Dates: end: 20210401

REACTIONS (10)
  - Vomiting [None]
  - Hypotension [None]
  - Decreased appetite [None]
  - COVID-19 [None]
  - Sepsis [None]
  - Nausea [None]
  - Asthenia [None]
  - Tachycardia [None]
  - Febrile neutropenia [None]
  - Diarrhoea [None]

NARRATIVE: CASE EVENT DATE: 20210328
